FAERS Safety Report 24292072 (Version 2)
Quarter: 2024Q3

REPORT INFORMATION
  Report Type: Report from Study
  Country: US (occurrence: US)
  Receive Date: 20240906
  Receipt Date: 20240917
  Transmission Date: 20241017
  Serious: Yes (Hospitalization, Other)
  Sender: ABBVIE
  Company Number: US-ABBVIE-5903553

PATIENT
  Age: 41 Year
  Sex: Female
  Weight: 72.574 kg

DRUGS (2)
  1. HUMIRA [Suspect]
     Active Substance: ADALIMUMAB
     Indication: Hidradenitis
     Route: 058
     Dates: start: 202207, end: 20240812
  2. HUMIRA [Suspect]
     Active Substance: ADALIMUMAB
     Route: 058
     Dates: start: 2022, end: 2022

REACTIONS (10)
  - Splenomegaly [Recovered/Resolved]
  - Arthralgia [Recovered/Resolved]
  - Hidradenitis [Recovered/Resolved]
  - Anaemia [Recovered/Resolved]
  - Nasal dryness [Recovered/Resolved]
  - Unevaluable event [Not Recovered/Not Resolved]
  - Uterine polyp [Not Recovered/Not Resolved]
  - Oropharyngeal pain [Recovered/Resolved]
  - Haemoglobin decreased [Recovered/Resolved]
  - Uterine leiomyoma [Not Recovered/Not Resolved]

NARRATIVE: CASE EVENT DATE: 20220701
